FAERS Safety Report 20012017 (Version 2)
Quarter: 2021Q4

REPORT INFORMATION
  Report Type: Report from Study
  Country: US (occurrence: US)
  Receive Date: 20211029
  Receipt Date: 20211209
  Transmission Date: 20220304
  Serious: Yes (Hospitalization, Other)
  Sender: FDA-Public Use
  Company Number: US-TAKEDA-US201936954

PATIENT
  Sex: Male
  Weight: 79 kg

DRUGS (44)
  1. HUMAN IMMUNOGLOBULIN G [Suspect]
     Active Substance: HUMAN IMMUNOGLOBULIN G
     Indication: Immune system disorder
     Dosage: 20 MILLIGRAM, Q2WEEKS
     Route: 058
     Dates: start: 20190928
  2. HUMAN IMMUNOGLOBULIN G [Suspect]
     Active Substance: HUMAN IMMUNOGLOBULIN G
     Indication: Immunodeficiency
     Dosage: 20 MILLIGRAM, Q2WEEKS
     Route: 058
     Dates: start: 20180930
  3. HUMAN IMMUNOGLOBULIN G [Suspect]
     Active Substance: HUMAN IMMUNOGLOBULIN G
     Dosage: 20 MILLIGRAM, Q2WEEKS
     Route: 058
     Dates: start: 20190930
  4. ACETAMINOPHEN [Concomitant]
     Active Substance: ACETAMINOPHEN
     Indication: Product used for unknown indication
  5. ACETAMINOPHEN [Concomitant]
     Active Substance: ACETAMINOPHEN
     Indication: Product used for unknown indication
  6. DIPHENHYDRAMINE [Concomitant]
     Active Substance: DIPHENHYDRAMINE
     Indication: Product used for unknown indication
  7. DIPHENHYDRAMINE [Concomitant]
     Active Substance: DIPHENHYDRAMINE
     Indication: Product used for unknown indication
  8. EPINEPHRINE [Concomitant]
     Active Substance: EPINEPHRINE
     Indication: Product used for unknown indication
  9. EPINEPHRINE [Concomitant]
     Active Substance: EPINEPHRINE
     Indication: Product used for unknown indication
  10. LIDOCAINE [Concomitant]
     Active Substance: LIDOCAINE
     Indication: Product used for unknown indication
  11. LIDOCAINE [Concomitant]
     Active Substance: LIDOCAINE
     Indication: Product used for unknown indication
  12. LASIX [Concomitant]
     Active Substance: FUROSEMIDE
     Indication: Product used for unknown indication
  13. LASIX [Concomitant]
     Active Substance: FUROSEMIDE
     Indication: Product used for unknown indication
  14. MOMETASONE FUROATE [Concomitant]
     Active Substance: MOMETASONE FUROATE
     Indication: Product used for unknown indication
  15. MOMETASONE FUROATE [Concomitant]
     Active Substance: MOMETASONE FUROATE
     Indication: Product used for unknown indication
  16. BONIVA [Concomitant]
     Active Substance: IBANDRONATE SODIUM
  17. ADVAIR HFA [Concomitant]
     Active Substance: FLUTICASONE PROPIONATE\SALMETEROL XINAFOATE
  18. VALSARTAN [Concomitant]
     Active Substance: VALSARTAN
  19. TEA [Concomitant]
     Active Substance: TEA LEAF
  20. PROBIOTICS NOS [Concomitant]
     Active Substance: PROBIOTICS NOS
  21. SIMVASTATIN [Concomitant]
     Active Substance: SIMVASTATIN
  22. LASIX [Concomitant]
     Active Substance: FUROSEMIDE
  23. VITAMIN C [Concomitant]
     Active Substance: ASCORBIC ACID
  24. VITAMIN D3 [Concomitant]
     Active Substance: CHOLECALCIFEROL
  25. XARELTO [Concomitant]
     Active Substance: RIVAROXABAN
  26. BUPROPION [Concomitant]
     Active Substance: BUPROPION
  27. FLUTICASONE [Concomitant]
     Active Substance: FLUTICASONE
  28. ANDROGEL [Concomitant]
     Active Substance: TESTOSTERONE
  29. SODIUM CHLORIDE [Concomitant]
     Active Substance: SODIUM CHLORIDE
  30. NYQUIL CHILDRENS [Concomitant]
  31. EPIGALLOCATECHIN GALLATE [Concomitant]
     Active Substance: EPIGALLOCATECHIN GALLATE
  32. Echinacea goldenseal [Concomitant]
  33. PREDNISONE [Concomitant]
     Active Substance: PREDNISONE
  34. PHENAZOPYRIDINE HYDROCHLORIDE [Concomitant]
     Active Substance: PHENAZOPYRIDINE HYDROCHLORIDE
  35. HERBALS [Concomitant]
     Active Substance: HERBALS
  36. EUCALYPTOL [Concomitant]
     Active Substance: EUCALYPTOL
  37. TAMSULOSIN [Concomitant]
     Active Substance: TAMSULOSIN
  38. CODEINE;PROMETHAZINE [Concomitant]
  39. IBANDRONATE SODIUM [Concomitant]
     Active Substance: IBANDRONATE SODIUM
  40. LISINOPRIL [Concomitant]
     Active Substance: LISINOPRIL
  41. CARVEDILOL [Concomitant]
     Active Substance: CARVEDILOL
  42. VITAMINS [Concomitant]
     Active Substance: VITAMINS
  43. Vick [Concomitant]
  44. ESCITALOPRAM OXALATE [Concomitant]
     Active Substance: ESCITALOPRAM OXALATE

REACTIONS (4)
  - Prostatic disorder [Unknown]
  - Post procedural haemorrhage [Unknown]
  - Nail hypertrophy [Unknown]
  - Pruritus [Unknown]
